FAERS Safety Report 24000567 (Version 1)
Quarter: 2024Q2

REPORT INFORMATION
  Report Type: Spontaneous
  Country: DE (occurrence: None)
  Receive Date: 20240621
  Receipt Date: 20240621
  Transmission Date: 20240716
  Serious: Yes (Disabling)
  Sender: FDA-Public Use
  Company Number: 2024A088373

PATIENT
  Age: 70 Year
  Sex: Female
  Weight: 51 kg

DRUGS (17)
  1. QUETIAPINE [Suspect]
     Active Substance: QUETIAPINE
     Indication: Anxiety
     Route: 048
  2. QUETIAPINE [Suspect]
     Active Substance: QUETIAPINE
     Indication: Anxiety
     Dosage: 25 MILLIGRAM IN 0.5 DAY
     Route: 048
  3. BROMAZEPAM [Suspect]
     Active Substance: BROMAZEPAM
  4. PANTOPRAZOLE [Suspect]
     Active Substance: PANTOPRAZOLE
  5. APIXABAN [Suspect]
     Active Substance: APIXABAN
     Dosage: 5 MILLIGRAM IN 0.5 DAY
  6. BISOPROLOL [Suspect]
     Active Substance: BISOPROLOL\BISOPROLOL FUMARATE
  7. TORSEMIDE [Suspect]
     Active Substance: TORSEMIDE
     Dosage: 10.0MG UNKNOWN
  8. RAMIPRIL [Suspect]
     Active Substance: RAMIPRIL
  9. LEVETIRACETAM [Suspect]
     Active Substance: LEVETIRACETAM
     Dosage: 1250 MILLIGRAM IN 0.5 DAY
  10. LACOSAMIDE [Suspect]
     Active Substance: LACOSAMIDE
     Dosage: 200 MILLIGRAM IN 0.5 DAY
  11. AMLODIPINE [Suspect]
     Active Substance: AMLODIPINE BESYLATE
  12. TRIMIPRAMINE [Suspect]
     Active Substance: TRIMIPRAMINE
     Dosage: 1 DOSAGE FORM IN 8 HOUR
  13. DOXYLAMINE [Suspect]
     Active Substance: DOXYLAMINE
  14. CANDESARTAN [Suspect]
     Active Substance: CANDESARTAN
     Dosage: PRESCRIBED BY GP, BUT NO REFERENCE TO INGESTION BY THE PATIENT
  15. INDAPAMIDE [Suspect]
     Active Substance: INDAPAMIDE
     Dosage: PRESCRIBED BY GP, BUT NO REFERENCE TO INGESTION BY THE PATIENT
  16. FOLIC ACID [Concomitant]
     Active Substance: FOLIC ACID
  17. IRON [Concomitant]
     Active Substance: IRON

REACTIONS (7)
  - Gait disturbance [Unknown]
  - Fall [Unknown]
  - Asthenia [Unknown]
  - Off label use [Unknown]
  - Apathy [Unknown]
  - Blood iron decreased [Unknown]
  - Fatigue [Unknown]
